FAERS Safety Report 4654835-0 (Version None)
Quarter: 2005Q2

REPORT INFORMATION
  Report Type: 
  Country: None (occurrence: None)
  Receive Date: 20050506
  Receipt Date: 20050118
  Transmission Date: 20051028
  Serious: No
  Sender: FDA-Public Use
  Company Number: US-GLAXOSMITHKLINE-A0541105A

PATIENT
  Age: 5 Year
  Sex: Female

DRUGS (1)
  1. AMOXIL [Suspect]
     Route: 048
     Dates: start: 20050107, end: 20050117

REACTIONS (1)
  - PRURITUS [None]
